FAERS Safety Report 23866914 (Version 2)
Quarter: 2024Q3

REPORT INFORMATION
  Report Type: Spontaneous
  Country: US (occurrence: US)
  Receive Date: 20240517
  Receipt Date: 20240717
  Transmission Date: 20241017
  Serious: No
  Sender: Harrow Health
  Company Number: US-IMP-2024000244

PATIENT
  Sex: Female

DRUGS (1)
  1. VEVYE [Suspect]
     Active Substance: CYCLOSPORINE
     Indication: Product used for unknown indication

REACTIONS (2)
  - Drug ineffective [Unknown]
  - Product dose omission issue [Unknown]
